FAERS Safety Report 10196163 (Version 1)
Quarter: 2014Q2

REPORT INFORMATION
  Report Type: Spontaneous
  Country: AR (occurrence: AR)
  Receive Date: 20140527
  Receipt Date: 20140527
  Transmission Date: 20141212
  Serious: Yes (Death, Other)
  Sender: FDA-Public Use
  Company Number: AR-009507513-1405ARG012877

PATIENT
  Age: 63 Year
  Sex: Female

DRUGS (3)
  1. CANCIDAS [Suspect]
     Dosage: 70 MG DAILY (ON THE FIRST DAY)
     Route: 042
  2. CANCIDAS [Suspect]
     Dosage: 50 MG DAILY
     Route: 042
  3. AMPHOTERICIN B [Concomitant]
     Indication: FUNGAL INFECTION
     Dosage: 5 MG/KG/DAY

REACTIONS (2)
  - Candida infection [Fatal]
  - Multi-organ failure [Fatal]
